FAERS Safety Report 15469098 (Version 1)
Quarter: 2018Q4

REPORT INFORMATION
  Report Type: Spontaneous
  Country: US (occurrence: US)
  Receive Date: 20181005
  Receipt Date: 20181005
  Transmission Date: 20190205
  Serious: Yes (Other)
  Sender: FDA-Public Use
  Company Number: US-MYLANLABS-2018M1070577

PATIENT
  Sex: Female

DRUGS (1)
  1. FENTANYL TRANSDERMAL SYSTEM [Suspect]
     Active Substance: FENTANYL
     Indication: NEUROMYOPATHY
     Dosage: 1 DF, Q3D
     Route: 062

REACTIONS (6)
  - Wrong technique in product usage process [Not Recovered/Not Resolved]
  - Product adhesion issue [Unknown]
  - Panic attack [Recovered/Resolved]
  - Loss of consciousness [Recovered/Resolved]
  - Feeling hot [Unknown]
  - Dyspnoea [Recovered/Resolved]
